FAERS Safety Report 4996392-5 (Version None)
Quarter: 2006Q2

REPORT INFORMATION
  Report Type: 
  Country: None (occurrence: None)
  Receive Date: 20060505
  Receipt Date: 20060425
  Transmission Date: 20061013
  Serious: Yes (Death)
  Sender: FDA-Public Use
  Company Number: 06H-028-0307820-00

PATIENT

DRUGS (5)
  1. ETOPOSIDE [Suspect]
     Indication: ACUTE LEUKAEMIA
     Dosage: 2.4-3.0 G/M**2, CONTINUOUS INFUSION
  2. CYCLOPHOSPHAMIDE [Suspect]
     Indication: ACUTE LEUKAEMIA
     Dosage: 6.0-7.2 G/M**2
  3. IRRADIATED CYTOMEGALOVIRUS-NEGATIVE BLOOD PRODUCTS (BLOOD AND RELATED [Concomitant]
  4. ACYCLOVIR [Concomitant]
  5. ANTIFUNGAL (ANTIFUNGALS) [Concomitant]

REACTIONS (3)
  - DRUG TOXICITY [None]
  - PANCYTOPENIA [None]
  - PNEUMONITIS [None]
